FAERS Safety Report 10951246 (Version 4)
Quarter: 2019Q2

REPORT INFORMATION
  Report Type: Report from Study
  Country: US (occurrence: US)
  Receive Date: 20150324
  Receipt Date: 20190524
  Transmission Date: 20190711
  Serious: Yes (Hospitalization, Other)
  Sender: FDA-Public Use
  Company Number: PHEH2015US005004

PATIENT
  Age: 45 Year
  Sex: Female

DRUGS (12)
  1. LORATADINE. [Concomitant]
     Active Substance: LORATADINE
     Indication: PRODUCT USED FOR UNKNOWN INDICATION
     Route: 065
  2. TEGRETOL [Concomitant]
     Active Substance: CARBAMAZEPINE
     Indication: PRODUCT USED FOR UNKNOWN INDICATION
     Route: 065
  3. QVAR [Concomitant]
     Active Substance: BECLOMETHASONE DIPROPIONATE
     Indication: PRODUCT USED FOR UNKNOWN INDICATION
     Route: 065
  4. OMEPRAZOLE. [Concomitant]
     Active Substance: OMEPRAZOLE
     Indication: PRODUCT USED FOR UNKNOWN INDICATION
     Route: 065
  5. AFINITOR [Suspect]
     Active Substance: EVEROLIMUS
     Indication: ASTROCYTOMA, LOW GRADE
  6. FLONASE [Concomitant]
     Active Substance: FLUTICASONE PROPIONATE
     Indication: PRODUCT USED FOR UNKNOWN INDICATION
     Route: 065
  7. FLOVENT [Concomitant]
     Active Substance: FLUTICASONE PROPIONATE
     Indication: PRODUCT USED FOR UNKNOWN INDICATION
     Route: 065
  8. ATORVASTATIN [Concomitant]
     Active Substance: ATORVASTATIN
     Indication: PRODUCT USED FOR UNKNOWN INDICATION
     Route: 065
  9. AFINITOR [Suspect]
     Active Substance: EVEROLIMUS
     Indication: ANGIOMYOLIPOMA
     Dosage: 5 MG, QD
     Route: 048
     Dates: start: 20150210
  10. PROVENTIL [Concomitant]
     Active Substance: ALBUTEROL
     Indication: PRODUCT USED FOR UNKNOWN INDICATION
     Route: 065
  11. PAXIL [Concomitant]
     Active Substance: PAROXETINE HYDROCHLORIDE
     Indication: PRODUCT USED FOR UNKNOWN INDICATION
     Route: 065
  12. KEPPRA [Concomitant]
     Active Substance: LEVETIRACETAM
     Indication: PRODUCT USED FOR UNKNOWN INDICATION
     Route: 065

REACTIONS (24)
  - Pain [Unknown]
  - Neuropathy peripheral [Unknown]
  - Feeling cold [Unknown]
  - Seizure [Unknown]
  - Tongue biting [Unknown]
  - Smear cervix abnormal [Not Recovered/Not Resolved]
  - Hot flush [Unknown]
  - Taste disorder [Unknown]
  - Feeling hot [Unknown]
  - Stomatitis [Unknown]
  - Oedema [Unknown]
  - Fatigue [Unknown]
  - Malaise [Recovering/Resolving]
  - Eating disorder [Recovering/Resolving]
  - Decreased appetite [Unknown]
  - Pelvic pain [Unknown]
  - Pain in extremity [Unknown]
  - Lip dry [Unknown]
  - Peripheral swelling [Unknown]
  - Headache [Unknown]
  - Oropharyngeal pain [Unknown]
  - Dry eye [Unknown]
  - Nasal dryness [Unknown]
  - Dizziness [Unknown]

NARRATIVE: CASE EVENT DATE: 20150331
